FAERS Safety Report 6944548-4 (Version None)
Quarter: 2010Q3

REPORT INFORMATION
  Report Type: 
  Country: None (occurrence: None)
  Receive Date: 20100827
  Receipt Date: 20100813
  Transmission Date: 20110219
  Serious: Yes (Hospitalization, Other)
  Sender: FDA-Public Use
  Company Number: US-ELI_LILLY_AND_COMPANY-US201007006079

PATIENT
  Sex: Female

DRUGS (24)
  1. FORTEO [Suspect]
     Indication: OSTEOPOROSIS
     Dosage: 20 UG, DAILY (1/D)
     Route: 065
  2. ALBUTEROL [Concomitant]
     Dosage: UNK, AS NEEDED
     Route: 065
  3. ALLEGRA [Concomitant]
     Dosage: 180 MG, DAILY (1/D)
  4. ASTELIN [Concomitant]
     Dosage: UNK, 2/D
     Route: 045
  5. IPRATROPIUM BROMIDE [Concomitant]
     Dosage: UNK, 2/D
     Route: 045
  6. NASACORT AQ [Concomitant]
     Dosage: UNK, 2/D
     Route: 045
  7. PULMICORT [Concomitant]
     Dosage: UNK, 2/D
     Route: 045
  8. SINGULAIR [Concomitant]
     Dosage: 10 MG, DAILY (1/D)
  9. COUMADIN [Concomitant]
     Dosage: UNK, AS NEEDED
     Route: 065
  10. FUROSEMIDE [Concomitant]
     Dosage: 40 MG, 2/D
  11. KLOR-CON [Concomitant]
     Dosage: 20 MG, 2/D
     Route: 065
  12. LIPITOR [Concomitant]
     Dosage: 80 MG, DAILY (1/D)
  13. NEXIUM [Concomitant]
     Dosage: 40 MG, DAILY (1/D)
  14. TOPROL-XL [Concomitant]
     Dosage: 50 MG, DAILY (1/D)
  15. TRICOR [Concomitant]
     Dosage: 48 MG, DAILY (1/D)
  16. ZETIA [Concomitant]
     Dosage: 10 MG, DAILY (1/D)
  17. COLCHICINE [Concomitant]
     Dosage: 0.6 MG, DAILY (1/D)
  18. GABAPENTIN [Concomitant]
     Dosage: UNK, DAILY (1/D)
  19. GARLIC [Concomitant]
     Dosage: 500 MG, DAILY (1/D)
  20. MULTI-VITAMIN [Concomitant]
     Dosage: UNK, DAILY (1/D)
  21. GLUCOSAMINE/CHONDROITIN            /01625901/ [Concomitant]
     Dosage: UNK, DAILY (1/D)
     Route: 065
  22. CALCIUM [Concomitant]
     Dosage: 1500 MG, DAILY (1/D)
  23. VITAMIN D [Concomitant]
     Dosage: 1000 MG, DAILY (1/D)
  24. LOVAZA [Concomitant]
     Dosage: 1200 MG, DAILY (1/D)

REACTIONS (1)
  - NO ADVERSE EVENT [None]
